FAERS Safety Report 5847064-6 (Version None)
Quarter: 2008Q3

REPORT INFORMATION
  Report Type: 
  Country: None (occurrence: None)
  Receive Date: 20080815
  Receipt Date: 20080804
  Transmission Date: 20090109
  Serious: Yes (Hospitalization, Other)
  Sender: FDA-Public Use
  Company Number: US-PFIZER INC-2008065936

PATIENT
  Sex: Female
  Weight: 63.636 kg

DRUGS (3)
  1. LYRICA [Suspect]
     Indication: PARAESTHESIA
  2. ALL OTHER THERAPEUTIC PRODUCTS [Concomitant]
  3. VITAMIN TAB [Concomitant]

REACTIONS (6)
  - ABASIA [None]
  - CEREBROVASCULAR ACCIDENT [None]
  - EUPHORIC MOOD [None]
  - FALL [None]
  - HALLUCINATION [None]
  - LOSS OF CONSCIOUSNESS [None]
